FAERS Safety Report 4915509-1 (Version None)
Quarter: 2006Q1

REPORT INFORMATION
  Report Type: 
  Country: None (occurrence: None)
  Receive Date: 20060217
  Receipt Date: 20050117
  Transmission Date: 20060701
  Serious: Yes (Other)
  Sender: FDA-Public Use
  Company Number: US-MERCK-0501USA02843

PATIENT
  Age: 64 Year
  Sex: Male
  Weight: 84 kg

DRUGS (16)
  1. VIOXX [Suspect]
     Indication: BACK PAIN
     Route: 048
     Dates: start: 20030801
  2. VIOXX [Suspect]
     Route: 048
     Dates: start: 20040217, end: 20040930
  3. ASPIRIN [Concomitant]
     Indication: PROPHYLAXIS
     Route: 065
     Dates: start: 19960901
  4. ASPIRIN [Concomitant]
     Route: 065
     Dates: start: 19960901
  5. BEXTRA [Concomitant]
     Route: 065
     Dates: start: 20030201, end: 20030201
  6. ACYCLOVIR [Concomitant]
     Route: 065
  7. VIOXX [Suspect]
     Indication: ARTHRALGIA
     Route: 048
     Dates: start: 20000928, end: 20010430
  8. VIOXX [Suspect]
     Route: 048
     Dates: start: 20020709, end: 20021113
  9. VIOXX [Suspect]
     Route: 048
     Dates: start: 20030519, end: 20030719
  10. VIOXX [Suspect]
     Route: 048
     Dates: start: 20040217, end: 20040930
  11. VIOXX [Suspect]
     Route: 048
     Dates: start: 20030801
  12. VIOXX [Suspect]
     Route: 048
     Dates: start: 20040217, end: 20040930
  13. VIOXX [Suspect]
     Route: 048
     Dates: start: 20000928, end: 20010430
  14. VIOXX [Suspect]
     Route: 048
     Dates: start: 20020709, end: 20021113
  15. VIOXX [Suspect]
     Route: 048
     Dates: start: 20030519, end: 20030719
  16. VIOXX [Suspect]
     Route: 048
     Dates: start: 20040217, end: 20040930

REACTIONS (7)
  - HYPERCHOLESTEROLAEMIA [None]
  - HYPERTENSION [None]
  - MACULAR DEGENERATION [None]
  - MENISCUS LESION [None]
  - RETINAL VEIN OCCLUSION [None]
  - TENDON RUPTURE [None]
  - URTICARIA [None]
